FAERS Safety Report 24113270 (Version 2)
Quarter: 2024Q3

REPORT INFORMATION
  Report Type: Spontaneous
  Country: SZ (occurrence: CH)
  Receive Date: 20240719
  Receipt Date: 20240815
  Transmission Date: 20241017
  Serious: Yes (Death)
  Sender: ELI LILLY AND CO
  Company Number: SZ-ELI_LILLY_AND_COMPANY-CH202407010666

PATIENT
  Age: 68 Year
  Sex: Male

DRUGS (5)
  1. ALIMTA [Suspect]
     Active Substance: PEMETREXED DISODIUM
     Indication: Lung adenocarcinoma
     Dosage: 500 MG, UNKNOWN
     Route: 065
  2. ALIMTA [Suspect]
     Active Substance: PEMETREXED DISODIUM
     Dosage: 100 MG, UNKNOWN
     Route: 065
  3. KEYTRUDA [Suspect]
     Active Substance: PEMBROLIZUMAB
     Indication: Lung adenocarcinoma
     Dosage: UNK, UNKNOWN
     Route: 065
  4. CYANOCOBALAMIN [Concomitant]
     Active Substance: CYANOCOBALAMIN
     Indication: Product used for unknown indication
     Dosage: UNK UNK, UNKNOWN
  5. FOLATE SODIUM [Concomitant]
     Active Substance: FOLATE SODIUM
     Indication: Product used for unknown indication
     Dosage: UNK UNK, UNKNOWN

REACTIONS (1)
  - Malignant neoplasm progression [Fatal]
